FAERS Safety Report 7243085-X (Version None)
Quarter: 2011Q1

REPORT INFORMATION
  Report Type: 
  Country: None (occurrence: None)
  Receive Date: 20110125
  Receipt Date: 20101124
  Transmission Date: 20110831
  Serious: No
  Sender: FDA-Public Use
  Company Number: US-AMGEN-USASP2010006361

PATIENT
  Age: 70 Year
  Sex: Female

DRUGS (8)
  1. PROLIA [Suspect]
     Indication: OSTEOPOROSIS POSTMENOPAUSAL
     Dosage: 60 MG, Q6MO
     Dates: start: 20101123
  2. OMEGA 3                            /00931501/ [Concomitant]
  3. CALCIUM [Concomitant]
  4. LIPITOR [Concomitant]
  5. ZOVIRAX                            /00587301/ [Concomitant]
  6. VITAMIN A [Concomitant]
  7. MULTIVITAMIN                       /00097801/ [Concomitant]
  8. VITAMINS                           /00067501/ [Concomitant]

REACTIONS (2)
  - DIZZINESS [None]
  - PALPITATIONS [None]
